FAERS Safety Report 24170338 (Version 2)
Quarter: 2024Q3

REPORT INFORMATION
  Report Type: Spontaneous
  Country: GB (occurrence: GB)
  Receive Date: 20240803
  Receipt Date: 20240911
  Transmission Date: 20241016
  Serious: Yes (Hospitalization)
  Sender: ACCORD
  Company Number: GB-Accord-438737

PATIENT
  Age: 81 Year
  Sex: Male

DRUGS (12)
  1. EPLERENONE [Suspect]
     Active Substance: EPLERENONE
     Indication: Cardiac amyloidosis
     Dosage: STRENGTH: 25 MG, QD PO
     Route: 048
     Dates: start: 202211, end: 202310
  2. FUROSEMIDE [Suspect]
     Active Substance: FUROSEMIDE
     Indication: Cardiac amyloidosis
     Dosage: STRENGTH: 40 MG QD PO
     Route: 048
     Dates: start: 20211020, end: 202310
  3. EMPAGLIFLOZIN [Suspect]
     Active Substance: EMPAGLIFLOZIN
     Indication: Product used for unknown indication
  4. QUININE SULFATE [Concomitant]
     Active Substance: QUININE SULFATE
     Indication: Muscle spasms
     Route: 048
     Dates: start: 202306
  5. COLCHICINE [Concomitant]
     Active Substance: COLCHICINE
     Indication: Gout
     Dosage: AS NEEDED (PRN)
     Route: 048
     Dates: start: 201508
  6. RIVAROXABAN [Concomitant]
     Active Substance: RIVAROXABAN
     Indication: Atrial fibrillation
     Dosage: 20 MG QD
     Route: 048
     Dates: start: 201906
  7. ALLOPURINOL [Concomitant]
     Active Substance: ALLOPURINOL
     Indication: Gout
     Dosage: 100 MG QD
     Route: 048
     Dates: start: 20210509
  8. FUROSEMIDE [Concomitant]
     Active Substance: FUROSEMIDE
     Indication: Cardiac amyloidosis
     Dosage: 40 MG QD
     Route: 048
     Dates: start: 20211020, end: 20231018
  9. EPLERENONE [Concomitant]
     Active Substance: EPLERENONE
     Indication: Cardiac amyloidosis
     Dosage: 25 MG QD
     Route: 048
     Dates: start: 202211
  10. OXYMETAZOLINE [Concomitant]
     Active Substance: OXYMETAZOLINE
     Indication: Sinus congestion
     Dosage: 1 SPRAY PRN VIA NASAL ROUTE
     Route: 045
     Dates: start: 20200729
  11. EMPAGLIFLOZIN [Concomitant]
     Active Substance: EMPAGLIFLOZIN
     Indication: Product used for unknown indication
     Dosage: 10 MG QD
     Route: 048
  12. EPLERENONE [Suspect]
     Active Substance: EPLERENONE
     Indication: Cardiac amyloidosis
     Dosage: STRENGTH: 12.5 MG QD PO
     Route: 048
     Dates: start: 202310, end: 20240813

REACTIONS (2)
  - Orthostatic hypotension [Recovered/Resolved with Sequelae]
  - Wrong technique in product usage process [Unknown]

NARRATIVE: CASE EVENT DATE: 20230926
